FAERS Safety Report 7796861-9 (Version None)
Quarter: 2011Q4

REPORT INFORMATION
  Report Type: 
  Country: None (occurrence: None)
  Receive Date: 20111005
  Receipt Date: 20110928
  Transmission Date: 20120403
  Serious: Yes (Hospitalization)
  Sender: FDA-Public Use
  Company Number: US-AMGEN-USASP2011050363

PATIENT
  Age: 91 Year
  Sex: Female

DRUGS (7)
  1. ARANESP [Suspect]
     Indication: NEPHROGENIC ANAEMIA
     Dosage: UNK
     Dates: start: 20110101
  2. AMLODIPINE [Concomitant]
  3. FEOSOL [Concomitant]
     Indication: ANAEMIA
  4. LISINOPRIL [Concomitant]
  5. NITROGLYCERIN ACC [Concomitant]
     Dosage: UNK UNK, PRN
  6. DIGOXIN [Concomitant]
  7. ATACAND [Concomitant]

REACTIONS (1)
  - HOSPITALISATION [None]
